FAERS Safety Report 9032315 (Version 2)
Quarter: 2013Q1

REPORT INFORMATION
  Report Type: Spontaneous
  Country: JP (occurrence: JP)
  Receive Date: 20130122
  Receipt Date: 20130129
  Transmission Date: 20140127
  Serious: No
  Sender: FDA-Public Use
  Company Number: JP-ELI_LILLY_AND_COMPANY-JP201301002619

PATIENT
  Age: 89 Year
  Sex: Female

DRUGS (3)
  1. FORTEO [Suspect]
     Dosage: UNK
     Route: 058
     Dates: start: 201210
  2. EXFORGE [Concomitant]
  3. DIOVAN [Concomitant]

REACTIONS (1)
  - Muscle spasms [Unknown]
